FAERS Safety Report 8992085 (Version 2)
Quarter: 2013Q2

REPORT INFORMATION
  Report Type: Report from Study
  Country: JP (occurrence: JP)
  Receive Date: 20121231
  Receipt Date: 20130426
  Transmission Date: 20140414
  Serious: Yes (Other)
  Sender: FDA-Public Use
  Company Number: JP-MERCK-2011SP018687

PATIENT
  Age: 64 Year
  Sex: Male
  Weight: 58 kg

DRUGS (9)
  1. PEGINTRON [Suspect]
     Indication: CHRONIC HEPATITIS C
     Dosage: 80 ?G, QW
     Route: 058
     Dates: start: 20100824, end: 20111220
  2. REBETOL [Suspect]
     Indication: CHRONIC HEPATITIS C
     Dosage: 200MG IN THE EVENING, 400 MG IN THE MORNING, QD
     Route: 048
     Dates: start: 20100810, end: 20100820
  3. REBETOL [Suspect]
     Dosage: 200MG IN THE EVENING, 400 MG IN THE MORNING, QD
     Route: 048
     Dates: start: 20100821, end: 20111220
  4. FERON [Suspect]
     Indication: CHRONIC HEPATITIS C
     Dosage: 6 MILLION IU, TIW
     Route: 041
     Dates: start: 20100810, end: 20100820
  5. AMARYL [Concomitant]
     Indication: DIABETES MELLITUS
     Dosage: 0.5 MG, QD
     Route: 048
     Dates: start: 20100810, end: 20100816
  6. AMARYL [Concomitant]
     Dosage: 2 MICROGRAM, QD
     Dates: start: 20100817, end: 20100913
  7. ALLEGRA [Concomitant]
     Indication: PROPHYLAXIS
     Dosage: 60 MG, QD
     Route: 048
     Dates: start: 20100810, end: 20120116
  8. PARIET [Concomitant]
     Indication: GASTRITIS
     Dosage: 10 MG, QD
     Route: 048
     Dates: start: 20100907
  9. BASEN OD [Concomitant]
     Indication: DIABETES MELLITUS
     Dosage: 0.6 MG, QD
     Route: 048
     Dates: start: 20100914

REACTIONS (3)
  - Diabetes mellitus [Recovering/Resolving]
  - Proteinuria [Recovered/Resolved]
  - Anaemia [Recovering/Resolving]
